FAERS Safety Report 8133559-1 (Version None)
Quarter: 2012Q1

REPORT INFORMATION
  Report Type: 
  Country: None (occurrence: None)
  Receive Date: 20120213
  Receipt Date: 20120209
  Transmission Date: 20120608
  Serious: No
  Sender: FDA-Public Use
  Company Number: US-BAYER-2012-014170

PATIENT

DRUGS (2)
  1. ALEVE (CAPLET) [Suspect]
     Indication: TOOTHACHE
  2. ACETAMINOPHEN [Concomitant]
     Indication: TOOTHACHE

REACTIONS (3)
  - INSOMNIA [None]
  - FACIAL PAIN [None]
  - NECK PAIN [None]
